FAERS Safety Report 10404474 (Version 1)
Quarter: 2014Q1

REPORT INFORMATION
  Report Type: Spontaneous
  Country: US (occurrence: None)
  Receive Date: 20140306
  Receipt Date: 20140306
  Transmission Date: 20141002
  Serious: Yes (Hospitalization, Other)
  Sender: FDA-Public Use
  Company Number: 163-21880-12053599

PATIENT
  Age: 53 Year
  Sex: Male
  Weight: 97.5 kg

DRUGS (5)
  1. REVLIMID (LENALIDOMIDE) (15 MILLIGRAM, CAPSULES) [Suspect]
     Indication: PLASMA CELL MYELOMA
     Dosage: 15 MG, 21 IN 28 D, PO
     Route: 048
     Dates: start: 20120125, end: 20120512
  2. PROTINIX DR [Concomitant]
  3. ACYCLOVIR [Concomitant]
  4. CRESTOR (ROSUVASTATIN) [Concomitant]
  5. GABAPENTIN [Concomitant]

REACTIONS (5)
  - Viral infection [None]
  - Pyrexia [None]
  - Vomiting [None]
  - Diarrhoea [None]
  - Night sweats [None]
